FAERS Safety Report 9363107 (Version 2)
Quarter: 2013Q3

REPORT INFORMATION
  Report Type: Spontaneous
  Country: US (occurrence: US)
  Receive Date: 20130624
  Receipt Date: 20130712
  Transmission Date: 20140515
  Serious: No
  Sender: FDA-Public Use
  Company Number: US-PFIZER INC-2013184305

PATIENT
  Sex: Male

DRUGS (2)
  1. XALKORI [Suspect]
     Dosage: 250 MG, 2X/DAY
  2. XALKORI [Suspect]
     Dosage: 250 MG, 1X/DAY, FOR 2 WEEKS

REACTIONS (1)
  - Lymphadenopathy [Unknown]
